FAERS Safety Report 5040208-8 (Version None)
Quarter: 2006Q2

REPORT INFORMATION
  Report Type: 
  Country: None (occurrence: None)
  Receive Date: 20060630
  Receipt Date: 20060621
  Transmission Date: 20061013
  Serious: Yes (Hospitalization)
  Sender: FDA-Public Use
  Company Number: JP-JNJFOC-20040301450

PATIENT
  Sex: Female
  Weight: 55 kg

DRUGS (18)
  1. REMICADE [Suspect]
     Route: 041
     Dates: start: 20031016
  2. REMICADE [Suspect]
     Route: 041
     Dates: start: 20031016
  3. REMICADE [Suspect]
     Indication: RHEUMATOID ARTHRITIS
     Route: 041
     Dates: start: 20031016
  4. RHEUMATREX [Suspect]
     Route: 048
  5. RHEUMATREX [Suspect]
     Dosage: START DATE: UNKNOWN
     Route: 048
  6. RHEUMATREX [Suspect]
     Indication: RHEUMATOID ARTHRITIS
     Route: 048
  7. PREDONINE [Suspect]
     Indication: RHEUMATOID ARTHRITIS
     Route: 048
     Dates: start: 20031003, end: 20040303
  8. PREDNISOLONE [Suspect]
     Indication: RHEUMATOID ARTHRITIS
     Route: 041
     Dates: start: 20040304
  9. CLINORIL [Concomitant]
     Indication: RHEUMATOID ARTHRITIS
     Dosage: STARTED ABOUT 10 YEARS AGO
     Route: 048
  10. FOLIAMIN [Concomitant]
     Route: 048
     Dates: start: 20031003, end: 20040226
  11. EVOXAC [Concomitant]
     Route: 048
  12. THYRADIN-S [Concomitant]
     Dosage: DOSE: 50 RG, STARTED ABOUT 15 YEARS AGO
     Route: 048
  13. GASTER D [Concomitant]
     Route: 048
  14. LASIX [Concomitant]
     Route: 048
     Dates: end: 20040303
  15. CERCINE [Concomitant]
     Route: 048
     Dates: end: 20040303
  16. ONEALFA [Concomitant]
     Dosage: DOSE: 1.0 RG
     Route: 048
     Dates: end: 20040303
  17. SERENAL [Concomitant]
     Route: 048
  18. ADRENAL HORMONE PREPARATIONS [Concomitant]
     Indication: RHEUMATOID ARTHRITIS
     Route: 065

REACTIONS (3)
  - BLOOD ALKALINE PHOSPHATASE INCREASED [None]
  - BLOOD LACTATE DEHYDROGENASE INCREASED [None]
  - PNEUMOCYSTIS JIROVECI PNEUMONIA [None]
